FAERS Safety Report 6786571-9 (Version None)
Quarter: 2010Q2

REPORT INFORMATION
  Report Type: 
  Country: None (occurrence: None)
  Receive Date: 20100623
  Receipt Date: 20100618
  Transmission Date: 20101027
  Serious: Yes (Other)
  Sender: FDA-Public Use
  Company Number: FR-ABBOTT-09P-056-0610237-00

PATIENT
  Age: 33 Year
  Sex: Female

DRUGS (6)
  1. KALETRA [Suspect]
     Indication: DRUG USE FOR UNKNOWN INDICATION
     Dosage: TABS/CAPS
     Route: 048
     Dates: start: 20090904, end: 20091003
  2. LEXIVA [Concomitant]
     Indication: DRUG USE FOR UNKNOWN INDICATION
     Route: 048
     Dates: start: 20081120, end: 20090904
  3. LEXIVA [Concomitant]
     Route: 048
     Dates: start: 20091008
  4. COMBIVIR [Concomitant]
     Indication: DRUG USE FOR UNKNOWN INDICATION
     Dosage: TABS/CAPS
     Route: 048
     Dates: start: 20090904
  5. NORVIR [Concomitant]
     Indication: DRUG USE FOR UNKNOWN INDICATION
     Route: 048
     Dates: start: 20081120
  6. EMTRICITABINE/TENOFOVIR DISOPROXIL FUMARATE [Concomitant]
     Indication: DRUG USE FOR UNKNOWN INDICATION
     Dosage: TABS/CAPS
     Route: 048
     Dates: start: 20081106, end: 20090904

REACTIONS (3)
  - DRUG INTOLERANCE [None]
  - PRE-ECLAMPSIA [None]
  - PREMATURE LABOUR [None]
